FAERS Safety Report 13090975 (Version 2)
Quarter: 2017Q1

REPORT INFORMATION
  Report Type: Spontaneous
  Country: DE (occurrence: DE)
  Receive Date: 20170106
  Receipt Date: 20170314
  Transmission Date: 20170428
  Serious: Yes (Hospitalization)
  Sender: FDA-Public Use
  Company Number: DE-UCBSA-2016020687

PATIENT
  Age: 87 Year
  Sex: Female

DRUGS (1)
  1. NEUPRO [Suspect]
     Active Substance: ROTIGOTINE
     Indication: RESTLESS LEGS SYNDROME
     Dosage: 2 MG, ONCE DAILY (QD)
     Route: 062
     Dates: start: 201610

REACTIONS (6)
  - Skin fissures [Not Recovered/Not Resolved]
  - Nail bed disorder [Unknown]
  - Nail disorder [Unknown]
  - Hospitalisation [Recovered/Resolved]
  - Arthropathy [Unknown]
  - Pain [Unknown]

NARRATIVE: CASE EVENT DATE: 2016
